FAERS Safety Report 9562792 (Version 1)
Quarter: 2013Q3

REPORT INFORMATION
  Report Type: Spontaneous
  Country: US (occurrence: US)
  Receive Date: 20130927
  Receipt Date: 20130927
  Transmission Date: 20140515
  Serious: No
  Sender: FDA-Public Use
  Company Number: US-PFIZER INC-2013277831

PATIENT
  Sex: Male

DRUGS (1)
  1. LYRICA [Suspect]
     Dosage: UNK

REACTIONS (5)
  - Nervousness [Unknown]
  - Irritability [Unknown]
  - Feeling jittery [Unknown]
  - Insomnia [Unknown]
  - Muscle spasms [Unknown]
